FAERS Safety Report 24367192 (Version 5)
Quarter: 2025Q3

REPORT INFORMATION
  Report Type: Spontaneous
  Country: JP (occurrence: JP)
  Receive Date: 20240926
  Receipt Date: 20250821
  Transmission Date: 20251020
  Serious: Yes (Hospitalization, Other)
  Sender: UNITED THERAPEUTICS
  Company Number: JP-UNITED THERAPEUTICS-UNT-2024-027473

PATIENT
  Age: 92 Year
  Sex: Female

DRUGS (3)
  1. TREPROSTINIL [Suspect]
     Active Substance: TREPROSTINIL
     Indication: Pulmonary arterial hypertension
     Dosage: 54 ?G, QID
     Dates: start: 20240802, end: 20240827
  2. TREPROSTINIL [Suspect]
     Active Substance: TREPROSTINIL
     Dosage: 36 ?G, QID
     Dates: start: 20240828
  3. TREPROSTINIL [Suspect]
     Active Substance: TREPROSTINIL

REACTIONS (6)
  - Interstitial lung disease [Recovering/Resolving]
  - Flank pain [Not Recovered/Not Resolved]
  - Infection [Unknown]
  - Cough [Not Recovered/Not Resolved]
  - Oxygen saturation decreased [Unknown]
  - Coronavirus infection [Unknown]

NARRATIVE: CASE EVENT DATE: 20240101
